FAERS Safety Report 12947351 (Version 1)
Quarter: 2016Q4

REPORT INFORMATION
  Report Type: Spontaneous
  Country: US (occurrence: US)
  Receive Date: 20161116
  Receipt Date: 20161116
  Transmission Date: 20170207
  Serious: Yes (Hospitalization)
  Sender: FDA-Public Use
  Company Number: US-G+W LABS-GW2016US000177

PATIENT

DRUGS (2)
  1. MESALAMINE. [Suspect]
     Active Substance: MESALAMINE
     Indication: COLITIS ULCERATIVE
     Dosage: 2.4 G, QD
     Route: 065
  2. MESALAMINE. [Suspect]
     Active Substance: MESALAMINE
     Indication: COLITIS

REACTIONS (1)
  - Myocarditis [Recovered/Resolved]
